FAERS Safety Report 11129144 (Version 1)
Quarter: 2015Q2

REPORT INFORMATION
  Report Type: Spontaneous
  Country: US (occurrence: None)
  Receive Date: 20150520
  Receipt Date: 20150520
  Transmission Date: 20150821
  Serious: Yes (Life-Threatening)
  Sender: FDA-Public Use
  Company Number: None

PATIENT
  Age: 18 Year
  Sex: Female

DRUGS (1)
  1. DOXYCYCLINE HYCLATE 100MG [Suspect]
     Active Substance: DOXYCYCLINE HYCLATE
     Indication: LYME DISEASE
     Dosage: 1 PILL
     Route: 048
     Dates: start: 20150412, end: 20150426

REACTIONS (8)
  - Depression [None]
  - Tremor [None]
  - Obsessive thoughts [None]
  - Weight decreased [None]
  - Fear of death [None]
  - Panic reaction [None]
  - Feeding disorder [None]
  - Crying [None]

NARRATIVE: CASE EVENT DATE: 20150417
